FAERS Safety Report 9372307 (Version 1)
Quarter: 2013Q2

REPORT INFORMATION
  Report Type: Report from Study
  Country: AR (occurrence: AR)
  Receive Date: 20130627
  Receipt Date: 20130627
  Transmission Date: 20140414
  Serious: Yes (Hospitalization, Other)
  Sender: FDA-Public Use
  Company Number: PHHY2013AR065845

PATIENT
  Sex: Male

DRUGS (4)
  1. DIOVAN [Suspect]
     Indication: HYPERTENSION
     Dosage: 1 DF, (160 MG) DAILY
     Route: 048
  2. DIOVAN [Suspect]
     Dosage: 320 MG, UNK
     Route: 048
  3. DIOVAN [Suspect]
     Dosage: 80 MG, UNK
     Route: 048
  4. DIOVAN [Suspect]
     Dosage: 1 DF, (160 MG) DAILY
     Route: 048

REACTIONS (2)
  - Prostate cancer [Unknown]
  - Neuropathy peripheral [Unknown]
